FAERS Safety Report 19449409 (Version 1)
Quarter: 2021Q2

REPORT INFORMATION
  Report Type: Spontaneous
  Country: US (occurrence: US)
  Receive Date: 20210622
  Receipt Date: 20210622
  Transmission Date: 20210717
  Serious: No
  Sender: FDA-Public Use
  Company Number: US-BAYER-2021-144951

PATIENT
  Age: 76 Year
  Sex: Male

DRUGS (1)
  1. ALIQOPA [Suspect]
     Active Substance: COPANLISIB
     Dosage: UNK
     Route: 042
     Dates: start: 20210513

REACTIONS (1)
  - Device issue [None]

NARRATIVE: CASE EVENT DATE: 20210513
